FAERS Safety Report 8334719-7 (Version None)
Quarter: 2012Q2

REPORT INFORMATION
  Report Type: 
  Country: None (occurrence: None)
  Receive Date: 20120503
  Receipt Date: 20120419
  Transmission Date: 20120825
  Serious: Yes (Death)
  Sender: FDA-Public Use
  Company Number: JP-ROCHE-1038000

PATIENT
  Sex: Male
  Weight: 43 kg

DRUGS (7)
  1. NAVELBINE [Concomitant]
     Indication: LUNG SQUAMOUS CELL CARCINOMA STAGE IV
     Dosage: DOSAGE IS UNCERTAIN.
     Route: 042
     Dates: start: 20110601
  2. LENDORMIN [Concomitant]
     Route: 048
     Dates: start: 20110819
  3. MEDICON [Concomitant]
     Route: 048
     Dates: start: 20110822
  4. LANSOPRAZOLE [Concomitant]
     Route: 048
     Dates: start: 20110805
  5. ACTEMRA [Suspect]
     Indication: CACHEXIA
     Route: 041
     Dates: start: 20110811, end: 20110908
  6. PREDNISOLONE [Concomitant]
     Indication: CACHEXIA
     Route: 048
     Dates: start: 20110711
  7. NAPROXEN [Concomitant]
     Indication: CACHEXIA
     Route: 048
     Dates: start: 20110711

REACTIONS (3)
  - PYREXIA [None]
  - URTICARIA [None]
  - LUNG SQUAMOUS CELL CARCINOMA STAGE UNSPECIFIED [None]
